FAERS Safety Report 6144896-4 (Version None)
Quarter: 2009Q2

REPORT INFORMATION
  Report Type: 
  Country: None (occurrence: None)
  Receive Date: 20090402
  Receipt Date: 20090402
  Transmission Date: 20091009
  Serious: Yes (Life-Threatening, Hospitalization, Disabling)
  Sender: FDA-Public Use
  Company Number: None

PATIENT
  Age: 78 Year
  Sex: Female
  Weight: 63.5036 kg

DRUGS (1)
  1. ESMOLOL HCL [Suspect]
     Indication: BLOOD PRESSURE INCREASED
     Dosage: LUTHER HOSPITAL IN EAU CLA IRE, WI WOULD HAVE
     Dates: start: 20080723, end: 20080723

REACTIONS (2)
  - CARDIO-RESPIRATORY ARREST [None]
  - UNRESPONSIVE TO STIMULI [None]
